FAERS Safety Report 8887027 (Version 1)
Quarter: 2012Q4

REPORT INFORMATION
  Report Type: 
  Country: CH (occurrence: CH)
  Receive Date: 20121105
  Receipt Date: 20121105
  Transmission Date: 20130627
  Serious: Yes (Hospitalization, Other)
  Sender: FDA-Public Use
  Company Number: CH-ELI_LILLY_AND_COMPANY-CH201210009327

PATIENT
  Age: 58 Year
  Sex: Male

DRUGS (3)
  1. ALIMTA [Suspect]
     Indication: NON-SMALL CELL LUNG CANCER
     Dosage: UNK
     Route: 042
     Dates: start: 20120807, end: 20120807
  2. CARBOPLATIN [Concomitant]
     Indication: NON-SMALL CELL LUNG CANCER
     Dosage: UNK
     Route: 042
     Dates: start: 20120807, end: 20120807
  3. FOLVITE [Concomitant]
     Dosage: 5 mg, qd
     Route: 048

REACTIONS (5)
  - Cardiovascular insufficiency [Recovering/Resolving]
  - Escherichia sepsis [Recovering/Resolving]
  - Colitis [Recovering/Resolving]
  - Pancytopenia [Recovering/Resolving]
  - Renal failure [Recovering/Resolving]
